FAERS Safety Report 25920839 (Version 1)
Quarter: 2025Q4

REPORT INFORMATION
  Report Type: Spontaneous
  Country: IN (occurrence: IN)
  Receive Date: 20251014
  Receipt Date: 20251014
  Transmission Date: 20260118
  Serious: Yes (Other)
  Sender: PFIZER
  Company Number: IN-PFIZER INC-PV202200066575

PATIENT
  Age: 56 Year
  Sex: Male
  Weight: 73 kg

DRUGS (17)
  1. LORLATINIB [Suspect]
     Active Substance: LORLATINIB
     Indication: Non-small cell lung cancer metastatic
     Dosage: 100 MG, 1X/DAY
     Route: 048
     Dates: start: 202408
  2. ATROVAS [Concomitant]
     Dosage: 20 MG, 1X/DAY, 2 MONTHS
  3. BECOSULES [ASCORBIC ACID;BIOTIN;CALCIUM PANTOTHENATE;CYANOCOBALAMIN;FO [Concomitant]
     Dosage: UNK UNK, 1X/DAY (FOR 2 MONTHS)
  4. CREMAFFIN [Concomitant]
     Dosage: 20 ML X 60 DAYS
  5. DEXATAB [Concomitant]
     Dosage: 2 MG, 2X/DAY (BD) X 5D
  6. DEXATAB [Concomitant]
     Dosage: 2 MG, 1X/DAY (OD) X 5D
  7. DULCOLAX (BISACODYL) [Concomitant]
     Active Substance: BISACODYL
     Dosage: UNK UNK, 2X/DAY X 15 DAYS
  8. DULCOLAX (BISACODYL) [Concomitant]
     Active Substance: BISACODYL
     Dosage: UNK UNK, 2X/DAY (HS) X 60 DAYS
  9. TORSEMIDE [Concomitant]
     Active Substance: TORSEMIDE
     Dosage: 10 MG, AS NEEDED, 15 DAYS
  10. ASPIRIN [Concomitant]
     Active Substance: ASPIRIN
     Dosage: 150 MG, 1X/DAY, 2 MONTHS
  11. FENOFIBRATE [Concomitant]
     Active Substance: FENOFIBRATE
     Dosage: 160 MG, 2 MONTHS
  12. MOVICOL READY TO TAKE [Concomitant]
     Dosage: UNK UNK, 2X/DAY SACHET, 1-0-1 X 15 DAYS
  13. MUCAINE [ALUMINIUM HYDROXIDE GEL;MAGNESIUM HYDROXIDE;OXETACAINE] [Concomitant]
     Dosage: 20 ML, 3X/DAY
  14. PANTO D [Concomitant]
     Dosage: UNK UNK, 1X/DAY
  15. LEVETIRACETAM [Concomitant]
     Active Substance: LEVETIRACETAM
     Dosage: 500 MG, 2X/DAY, 2 MONTHS
  16. LOOZ [Concomitant]
     Dosage: 30 ML (HS) X 15 DAYS
  17. ZOMETA [Concomitant]
     Active Substance: ZOLEDRONIC ACID
     Dosage: 4 MG IN 100 NS, OVER 30 MIN, 3 MONTHS
     Route: 042

REACTIONS (10)
  - Lower limb fracture [Unknown]
  - Jaundice [Unknown]
  - Swelling face [Unknown]
  - Lipids abnormal [Unknown]
  - Blood albumin decreased [Unknown]
  - Constipation [Unknown]
  - Weight increased [Recovering/Resolving]
  - Oedema peripheral [Unknown]
  - Blood cholesterol increased [Unknown]
  - Blood triglycerides increased [Unknown]

NARRATIVE: CASE EVENT DATE: 20240101
